FAERS Safety Report 24394672 (Version 1)
Quarter: 2024Q4

REPORT INFORMATION
  Report Type: Spontaneous
  Country: DE (occurrence: DE)
  Receive Date: 20241004
  Receipt Date: 20241004
  Transmission Date: 20250115
  Serious: Yes (Other)
  Sender: REGENERON
  Company Number: DE-REGENERON PHARMACEUTICALS, INC.-2024-132122

PATIENT
  Age: 70 Year
  Sex: Female

DRUGS (2)
  1. LIBTAYO [Suspect]
     Active Substance: CEMIPLIMAB-RWLC
     Indication: Skin squamous cell carcinoma metastatic
     Dosage: UNK
     Dates: start: 202004
  2. LEVOTHYROXINE [Concomitant]
     Active Substance: LEVOTHYROXINE
     Indication: Product used for unknown indication
     Dosage: UNK

REACTIONS (5)
  - Flap necrosis [Recovered/Resolved]
  - Seroma [Recovered/Resolved]
  - Wound infection [Recovered/Resolved]
  - Wound dehiscence [Recovered/Resolved]
  - Disease progression [Recovered/Resolved]

NARRATIVE: CASE EVENT DATE: 20210101
